FAERS Safety Report 15832216 (Version 1)
Quarter: 2019Q1

REPORT INFORMATION
  Report Type: Spontaneous
  Country: CN (occurrence: CN)
  Receive Date: 20190116
  Receipt Date: 20190116
  Transmission Date: 20190417
  Serious: Yes (Other)
  Sender: FDA-Public Use
  Company Number: PHHY2019CN002622

PATIENT
  Age: 65 Year
  Sex: Male

DRUGS (6)
  1. CARBAMAZEPINE. [Suspect]
     Active Substance: CARBAMAZEPINE
     Indication: EPILEPSY
     Dosage: 0.1 G, Q12H
     Route: 048
  2. CARBAMAZEPINE. [Interacting]
     Active Substance: CARBAMAZEPINE
     Dosage: 0.1 G, Q8H
     Route: 048
  3. VALPROATE SODIUM. [Interacting]
     Active Substance: VALPROATE SODIUM
     Indication: EPILEPSY
     Dosage: 5 G, QD
     Route: 048
  4. VALPROATE SODIUM. [Interacting]
     Active Substance: VALPROATE SODIUM
     Dosage: 0.5 G, Q12H
     Route: 048
  5. VALPROATE SODIUM. [Interacting]
     Active Substance: VALPROATE SODIUM
     Dosage: 0. 5 G IN THE MORNING, 0. 75 G IN THE EVENING
     Route: 048
  6. DIAZEPAM. [Suspect]
     Active Substance: DIAZEPAM
     Indication: EPILEPSY
     Route: 042

REACTIONS (2)
  - Drug interaction [Recovered/Resolved]
  - Seizure [Recovered/Resolved]
